FAERS Safety Report 5080467-9 (Version None)
Quarter: 2006Q3

REPORT INFORMATION
  Report Type: 
  Country: None (occurrence: None)
  Receive Date: 20060815
  Receipt Date: 20000518
  Transmission Date: 20061208
  Serious: Yes (Hospitalization)
  Sender: FDA-Public Use
  Company Number: FR-SOLVAY-00200002850

PATIENT
  Age: 26024 Day
  Sex: Female

DRUGS (5)
  1. ACETYLSALICYLIC ACID SRT [Concomitant]
     Indication: ILL-DEFINED DISORDER
     Dosage: DAILY DOSE: UNK.
     Route: 065
     Dates: start: 20000124
  2. PERINDOPRIL ERBUMINE [Suspect]
     Indication: MYOCARDIAL INFARCTION
     Dosage: DAILY DOSE: UNK.
     Route: 048
     Dates: start: 20000104
  3. FUROSEMIDE [Concomitant]
     Indication: ILL-DEFINED DISORDER
     Dosage: DAILY DOSE: UNK.
     Route: 065
     Dates: start: 20000128
  4. METOPROLOL TARTRATE [Concomitant]
     Indication: ILL-DEFINED DISORDER
     Dosage: DAILY DOSE: UNK.
     Route: 065
     Dates: start: 20000203
  5. NITRATES [Concomitant]
     Indication: ILL-DEFINED DISORDER
     Dosage: DAILY DOSE: UNK.
     Route: 065
     Dates: start: 20000309

REACTIONS (4)
  - ANGINA PECTORIS [None]
  - CHEST PAIN [None]
  - CORONARY ARTERY DISEASE [None]
  - MYOCARDIAL ISCHAEMIA [None]
